FAERS Safety Report 25812518 (Version 1)
Quarter: 2025Q3

REPORT INFORMATION
  Report Type: Spontaneous
  Country: EU (occurrence: EU)
  Receive Date: 20250917
  Receipt Date: 20250917
  Transmission Date: 20251020
  Serious: Yes (Other)
  Sender: Medicap Laboratories
  Company Number: EU-Medicap-000061

PATIENT
  Age: 72 Year
  Sex: Male

DRUGS (5)
  1. VALPROIC ACID [Suspect]
     Active Substance: VALPROIC ACID
     Indication: Obsessive-compulsive disorder
     Route: 065
     Dates: start: 2018
  2. VALPROIC ACID [Suspect]
     Active Substance: VALPROIC ACID
     Indication: Obsessive-compulsive disorder
     Route: 065
  3. OLANZAPINE [Suspect]
     Active Substance: OLANZAPINE
     Indication: Obsessive-compulsive disorder
     Route: 065
     Dates: start: 2018
  4. VENLAFAXINE [Suspect]
     Active Substance: VENLAFAXINE HYDROCHLORIDE
     Indication: Obsessive-compulsive disorder
     Route: 065
     Dates: start: 2007, end: 2007
  5. VENLAFAXINE [Suspect]
     Active Substance: VENLAFAXINE HYDROCHLORIDE
     Indication: Obsessive-compulsive disorder
     Route: 065
     Dates: start: 2018

REACTIONS (4)
  - Therapy non-responder [Unknown]
  - Sedation [Unknown]
  - Disturbance in attention [Unknown]
  - Hypomania [Recovered/Resolved]

NARRATIVE: CASE EVENT DATE: 20070101
